FAERS Safety Report 16076973 (Version 1)
Quarter: 2019Q1

REPORT INFORMATION
  Report Type: Spontaneous
  Country: ES (occurrence: ES)
  Receive Date: 20190315
  Receipt Date: 20190315
  Transmission Date: 20190418
  Serious: Yes (Hospitalization)
  Sender: FDA-Public Use
  Company Number: ES-EISAI MEDICAL RESEARCH-EC-2019-052834

PATIENT
  Age: 3 Year
  Sex: Female
  Weight: 14 kg

DRUGS (5)
  1. PERAMPANEL [Suspect]
     Active Substance: PERAMPANEL
     Indication: EPILEPTIC ENCEPHALOPATHY
     Dosage: DOSE AND FREQUENCY UNKNOWN
     Route: 048
     Dates: start: 201611, end: 2016
  2. CLOBAZAM. [Concomitant]
     Active Substance: CLOBAZAM
     Indication: EPILEPTIC ENCEPHALOPATHY
     Route: 065
  3. PERAMPANEL [Suspect]
     Active Substance: PERAMPANEL
     Dosage: UP-TITRATION (DOSE AND FREQUENCY UNKNOWN)
     Dates: start: 2016, end: 2016
  4. VALPROIC ACID. [Concomitant]
     Active Substance: VALPROIC ACID
     Indication: EPILEPTIC ENCEPHALOPATHY
     Dosage: 42 MG/KG/DAY
     Route: 065
     Dates: start: 2015
  5. PERAMPANEL [Suspect]
     Active Substance: PERAMPANEL
     Route: 048
     Dates: start: 2016, end: 20170101

REACTIONS (2)
  - Petit mal epilepsy [Recovered/Resolved]
  - Product use issue [Recovered/Resolved]

NARRATIVE: CASE EVENT DATE: 20161230
